FAERS Safety Report 8089087-5 (Version None)
Quarter: 2012Q1

REPORT INFORMATION
  Report Type: 
  Country: None (occurrence: None)
  Receive Date: 20120128
  Receipt Date: 20110715
  Transmission Date: 20120608
  Serious: No
  Sender: FDA-Public Use
  Company Number: US-ABBOTT-11P-163-0717177-00

PATIENT
  Age: 56 Year
  Sex: Female

DRUGS (8)
  1. WELLBUTRIN [Concomitant]
     Indication: MENOPAUSE
  2. ZOLOFT [Concomitant]
     Indication: MEMORY IMPAIRMENT
  3. HUMIRA [Suspect]
     Indication: PSORIATIC ARTHROPATHY
     Dates: start: 20100101
  4. ZOLOFT [Concomitant]
     Indication: DISTURBANCE IN ATTENTION
  5. WELLBUTRIN [Concomitant]
     Indication: MEMORY IMPAIRMENT
  6. SIMVASTATIN [Concomitant]
     Indication: BLOOD CHOLESTEROL
     Dates: start: 20070101
  7. WELLBUTRIN [Concomitant]
     Indication: DISTURBANCE IN ATTENTION
  8. NEXIUM [Concomitant]
     Indication: GASTROOESOPHAGEAL REFLUX DISEASE
     Route: 048
     Dates: start: 20080101

REACTIONS (12)
  - MUSCLE SPASMS [None]
  - MALAISE [None]
  - NAUSEA [None]
  - DRUG DOSE OMISSION [None]
  - DIZZINESS [None]
  - FALL [None]
  - WEIGHT INCREASED [None]
  - TENDON INJURY [None]
  - ARTHRALGIA [None]
  - HYPERTENSION [None]
  - FEELING ABNORMAL [None]
  - GASTROOESOPHAGEAL REFLUX DISEASE [None]
